FAERS Safety Report 9306106 (Version 1)
Quarter: 2013Q2

REPORT INFORMATION
  Report Type: Spontaneous
  Country: US (occurrence: US)
  Receive Date: 20130523
  Receipt Date: 20130523
  Transmission Date: 20140414
  Serious: No
  Sender: FDA-Public Use
  Company Number: US-BAUSCH-BL-2012-001804

PATIENT
  Age: 82 Year
  Sex: Female

DRUGS (3)
  1. IPRATROPIUM BROMIDE NASAL SOLUTION 0.06% [Suspect]
     Indication: NASOPHARYNGITIS
     Dosage: TWO SPRAYS IN EACH NOSTRIL THREE TIMES DAILY
     Route: 049
     Dates: start: 20121030, end: 20121106
  2. TIMOLOL MALEATE [Concomitant]
     Indication: GLAUCOMA
  3. LATANOPROST [Concomitant]
     Indication: GLAUCOMA

REACTIONS (4)
  - Vision blurred [Not Recovered/Not Resolved]
  - Dizziness [Not Recovered/Not Resolved]
  - Balance disorder [Not Recovered/Not Resolved]
  - Discomfort [Not Recovered/Not Resolved]
